FAERS Safety Report 10047198 (Version 2)
Quarter: 2014Q1

REPORT INFORMATION
  Report Type: Spontaneous
  Country: US (occurrence: US)
  Receive Date: 20140331
  Receipt Date: 20140331
  Transmission Date: 20141002
  Serious: No
  Sender: FDA-Public Use
  Company Number: US-MYLANLABS-2013S1018780

PATIENT
  Sex: Male

DRUGS (9)
  1. FENTANYL TRANSDERMAL SYSTEM [Suspect]
     Indication: PAIN
     Dosage: Q3D
     Route: 062
     Dates: start: 201302
  2. SPIRIVA [Concomitant]
     Indication: CHRONIC OBSTRUCTIVE PULMONARY DISEASE
  3. SYNTHROID [Concomitant]
     Indication: HYPOTHYROIDISM
  4. HYDROCODONE + ACETAMINOPHEN [Concomitant]
     Indication: PAIN
  5. XANAX [Concomitant]
     Indication: BIPOLAR DISORDER
  6. GLUCOSAMINE AND CHONDROITIN [Concomitant]
  7. METFORMIN [Concomitant]
     Indication: DIABETES MELLITUS
  8. DEPAKOTE [Concomitant]
     Indication: BIPOLAR DISORDER
  9. LYRICA [Concomitant]

REACTIONS (5)
  - Drug effect decreased [Not Recovered/Not Resolved]
  - Pain [Not Recovered/Not Resolved]
  - Incorrect dose administered [Not Recovered/Not Resolved]
  - Application site irritation [Not Recovered/Not Resolved]
  - Application site erythema [Not Recovered/Not Resolved]
